FAERS Safety Report 8588588-0 (Version None)
Quarter: 2012Q3

REPORT INFORMATION
  Report Type: 
  Country: None (occurrence: None)
  Receive Date: 20120813
  Receipt Date: 20120801
  Transmission Date: 20120928
  Serious: Yes (Other)
  Sender: FDA-Public Use
  Company Number: CA-JNJFOC-20100305392

PATIENT
  Sex: Female
  Weight: 65 kg

DRUGS (4)
  1. IMURAN [Concomitant]
     Route: 048
     Dates: start: 20080101, end: 20100101
  2. MATERNA [Concomitant]
     Route: 048
     Dates: start: 20100101
  3. REMICADE [Suspect]
     Route: 042
     Dates: start: 20091103
  4. REMICADE [Suspect]
     Indication: CROHN'S DISEASE
     Dosage: EVERY 6-8 WEEKS
     Route: 042
     Dates: start: 20091123

REACTIONS (3)
  - MATERNAL EXPOSURE DURING PREGNANCY [None]
  - PREMATURE LABOUR [None]
  - CAESAREAN SECTION [None]
